FAERS Safety Report 10206111 (Version 1)
Quarter: 2014Q2

REPORT INFORMATION
  Report Type: Spontaneous
  Country: US (occurrence: US)
  Receive Date: 20140530
  Receipt Date: 20140530
  Transmission Date: 20141212
  Serious: No
  Sender: FDA-Public Use
  Company Number: US-PFIZER INC-2014146024

PATIENT
  Sex: Female

DRUGS (1)
  1. NEURONTIN [Suspect]
     Indication: NEUROPATHY PERIPHERAL
     Dosage: 1800 MG, 3X/DAY (600MG 3 TABLETS TID )

REACTIONS (3)
  - Drug effect incomplete [Unknown]
  - Drug ineffective [Unknown]
  - Overdose [Unknown]
